FAERS Safety Report 9406573 (Version 2)
Quarter: 2014Q2

REPORT INFORMATION
  Report Type: Spontaneous
  Country: EG (occurrence: EG)
  Receive Date: 20130718
  Receipt Date: 20140428
  Transmission Date: 20141212
  Serious: Yes (Other)
  Sender: FDA-Public Use
  Company Number: EG-JNJFOC-20130708687

PATIENT
  Sex: 0

DRUGS (2)
  1. CLADRIBINE [Suspect]
     Indication: HAIRY CELL LEUKAEMIA
     Route: 042
  2. CLADRIBINE [Suspect]
     Indication: HAIRY CELL LEUKAEMIA
     Route: 058

REACTIONS (6)
  - Mucosal inflammation [Unknown]
  - Viral infection [Unknown]
  - Hepatotoxicity [Unknown]
  - Neurotoxicity [Unknown]
  - Haematotoxicity [Unknown]
  - Incorrect route of drug administration [Unknown]
